FAERS Safety Report 15591697 (Version 7)
Quarter: 2019Q1

REPORT INFORMATION
  Report Type: Spontaneous
  Country: US (occurrence: US)
  Receive Date: 20181106
  Receipt Date: 20190328
  Transmission Date: 20190417
  Serious: Yes (Hospitalization, Other)
  Sender: FDA-Public Use
  Company Number: US-PFIZER INC-2018442010

PATIENT
  Age: 55 Year
  Sex: Female

DRUGS (4)
  1. LYRICA [Suspect]
     Active Substance: PREGABALIN
     Dosage: 200 MG, 2X/DAY
     Route: 048
     Dates: start: 2018
  2. LYRICA [Suspect]
     Active Substance: PREGABALIN
     Indication: NEUROPATHY PERIPHERAL
     Dosage: 100 MG, 3X/DAY
  3. LYRICA [Suspect]
     Active Substance: PREGABALIN
     Indication: PARAESTHESIA
     Dosage: 300 MG, UNK
  4. LYRICA [Suspect]
     Active Substance: PREGABALIN
     Indication: PAIN
     Dosage: UNK, 4X/DAY

REACTIONS (13)
  - Pain [Recovering/Resolving]
  - Memory impairment [Unknown]
  - Visual impairment [Not Recovered/Not Resolved]
  - Fatigue [Unknown]
  - Balance disorder [Unknown]
  - Pain in extremity [Recovering/Resolving]
  - Dystonia [Unknown]
  - Product use issue [Unknown]
  - Bedridden [Unknown]
  - Neuropathy peripheral [Unknown]
  - Malaise [Unknown]
  - Drug ineffective [Unknown]
  - Dizziness [Unknown]
